FAERS Safety Report 6083139-7 (Version None)
Quarter: 2009Q1

REPORT INFORMATION
  Report Type: 
  Country: None (occurrence: None)
  Receive Date: 20090213
  Receipt Date: 20090213
  Transmission Date: 20090719
  Serious: Yes (Disabling)
  Sender: FDA-Public Use
  Company Number: None

PATIENT
  Age: 42 Year
  Sex: Female
  Weight: 61.2356 kg

DRUGS (1)
  1. CIPRO HC [Suspect]
     Indication: EAR PAIN
     Dosage: 3 DROPS TWICE/DAY 7 DAYS
     Dates: start: 20081230

REACTIONS (1)
  - DEAFNESS [None]
